FAERS Safety Report 7445820-4 (Version None)
Quarter: 2011Q2

REPORT INFORMATION
  Report Type: 
  Country: None (occurrence: None)
  Receive Date: 20110429
  Receipt Date: 20110427
  Transmission Date: 20111010
  Serious: Yes (Other)
  Sender: FDA-Public Use
  Company Number: PHHO2011NL07336

PATIENT
  Weight: 16.9 kg

DRUGS (7)
  1. GLEEVEC [Suspect]
     Indication: ACUTE LYMPHOCYTIC LEUKAEMIA
     Dosage: 200 MG, UNK
     Route: 048
     Dates: start: 20110326
  2. VINCRISTINE [Suspect]
     Dosage: 1.1 MG, UNK
     Route: 042
  3. PREDNISOLONE [Concomitant]
  4. ASPARAGINASE [Concomitant]
  5. METHOTREXATE [Concomitant]
  6. CYTARABINE [Concomitant]
  7. DAUNORUBICIN HCL [Concomitant]

REACTIONS (3)
  - DEHYDRATION [None]
  - ASCITES [None]
  - SUBILEUS [None]
